FAERS Safety Report 14941292 (Version 12)
Quarter: 2020Q1

REPORT INFORMATION
  Report Type: Spontaneous
  Country: BR (occurrence: BR)
  Receive Date: 20180526
  Receipt Date: 20200219
  Transmission Date: 20200409
  Serious: Yes (Hospitalization, Other)
  Sender: FDA-Public Use
  Company Number: BR-AMGEN-BRASP2018053479

PATIENT
  Age: 53 Year
  Sex: Male

DRUGS (4)
  1. ENBREL [Suspect]
     Active Substance: ETANERCEPT
     Dosage: 50 MILLIGRAM, QWK
     Route: 065
     Dates: start: 201803, end: 201905
  2. GLUCOSAMIN + CHONDROITIN [Concomitant]
     Dosage: UNK
     Dates: start: 201803
  3. ENBREL [Suspect]
     Active Substance: ETANERCEPT
     Dosage: UNK
     Route: 065
     Dates: start: 201804
  4. ENBREL [Suspect]
     Active Substance: ETANERCEPT
     Indication: ANKYLOSING SPONDYLITIS
     Dosage: UNK
     Route: 065
     Dates: start: 20180201

REACTIONS (16)
  - Osteoarthritis [Unknown]
  - Product use issue [Unknown]
  - Injury associated with device [Unknown]
  - Injection site pain [Not Recovered/Not Resolved]
  - Injury associated with device [Recovered/Resolved]
  - Wrong technique in product usage process [Unknown]
  - Gastrointestinal disorder [Recovered/Resolved]
  - Movement disorder [Unknown]
  - Inflammatory bowel disease [Recovered/Resolved]
  - Malaise [Unknown]
  - Wound [Recovered/Resolved]
  - Therapeutic product effect incomplete [Unknown]
  - Myopia [Unknown]
  - Astigmatism [Unknown]
  - Off label use [Unknown]
  - Puncture site haemorrhage [Recovered/Resolved]

NARRATIVE: CASE EVENT DATE: 2018
